FAERS Safety Report 4560046-X (Version None)
Quarter: 2005Q1

REPORT INFORMATION
  Report Type: 
  Country: None (occurrence: None)
  Receive Date: 20050125
  Receipt Date: 20050113
  Transmission Date: 20050727
  Serious: Yes (Death)
  Sender: FDA-Public Use
  Company Number: US-JNJFOC-20050103668

PATIENT
  Sex: Female

DRUGS (11)
  1. INFLIXIMAB [Suspect]
     Indication: RHEUMATOID ARTHRITIS
     Route: 042
  2. ASACOL [Concomitant]
  3. AVAPRO [Concomitant]
  4. ESTRACE [Concomitant]
  5. FEOSOL [Concomitant]
  6. LOPRESSOR [Concomitant]
  7. PREDNISONE [Concomitant]
  8. PRILOSEC [Concomitant]
  9. PROVERA [Concomitant]
  10. TYLENOL [Concomitant]
  11. VITAMIN B-12 [Concomitant]

REACTIONS (1)
  - BRAIN NEOPLASM [None]
